FAERS Safety Report 12174620 (Version 2)
Quarter: 2016Q1

REPORT INFORMATION
  Report Type: Report from Study
  Country: JP (occurrence: JP)
  Receive Date: 20160312
  Receipt Date: 20160329
  Transmission Date: 20160526
  Serious: Yes (Other)
  Sender: FDA-Public Use
  Company Number: JP-ACCORD-038669

PATIENT

DRUGS (3)
  1. FLUOROURACIL. [Suspect]
     Active Substance: FLUOROURACIL
     Indication: METASTASES TO LIVER
     Dosage: RECEIVED WEEKLY VIA CONTINUOUS 5-HOUR INFUSION USING A CONTINUOUS-INFUSION DEVICE AS HAIC REGIMEN
     Dates: end: 201109
  2. CETUXIMAB [Concomitant]
     Active Substance: CETUXIMAB
     Indication: METASTASES TO LIVER
     Dosage: RECEIVED AS SINGLE ADMINISTRATION, AS HAIC REGIMEN
     Dates: end: 201109
  3. OXALIPLATIN. [Suspect]
     Active Substance: OXALIPLATIN
     Indication: METASTASES TO LIVER
     Dates: end: 201109

REACTIONS (2)
  - Transaminases increased [Unknown]
  - Blood bilirubin increased [Unknown]
